FAERS Safety Report 7487323-7 (Version None)
Quarter: 2011Q2

REPORT INFORMATION
  Report Type: 
  Country: None (occurrence: None)
  Receive Date: 20110518
  Receipt Date: 20110504
  Transmission Date: 20111010
  Serious: Yes (Hospitalization)
  Sender: FDA-Public Use
  Company Number: US-ELI_LILLY_AND_COMPANY-US200908006048

PATIENT
  Sex: Female
  Weight: 78.4 kg

DRUGS (19)
  1. LASIX [Concomitant]
     Dosage: 20 MG, DAILY (1/D)
  2. LEXAPRO [Concomitant]
     Dosage: 20 MG, DAILY (1/D)
  3. HUMALOG [Concomitant]
  4. LIBRIUM [Concomitant]
     Dosage: 5 MG, BID
  5. COUMADIN [Concomitant]
     Dosage: 5 MG, QD
  6. NOVOLOG [Concomitant]
     Dosage: 70/30UNITS IN PM
  7. NEURONTIN [Concomitant]
     Dosage: 200 MG, DAILY (1/D)
  8. FORTEO [Suspect]
     Dosage: 20 UG, QD
     Dates: start: 20110312
  9. TYLENOL (CAPLET) [Concomitant]
     Dosage: UNK, 3/D
  10. NAMENDA [Concomitant]
     Dosage: 10 MG, 2/D
  11. QUINAPRIL [Concomitant]
     Dosage: 10 MG, DAILY (1/D)
  12. SINGULAIR [Concomitant]
     Dosage: 10 MG, AS NEEDED
  13. EXELON [Concomitant]
     Dosage: 6 MG, 2/D
  14. FLOMAX [Concomitant]
     Dosage: 0.4 MG, QD
  15. LORTAB [Concomitant]
     Dosage: 7.5/500 MG, EVERY 4 HRS
  16. CRESTOR [Concomitant]
     Dosage: 10 MG, DAILY (1/D)
  17. STOOL SOFTENER [Concomitant]
     Dosage: UNK, 2/D
  18. FORTEO [Suspect]
     Indication: OSTEOPOROSIS
     Dosage: 20 UG, DAILY (1/D)
  19. ACCUPRIL [Concomitant]
     Dosage: 10 MG, QD

REACTIONS (10)
  - HAEMOPTYSIS [None]
  - CONTUSION [None]
  - EPISTAXIS [None]
  - CONSTIPATION [None]
  - INJECTION SITE ERYTHEMA [None]
  - BLOOD URINE PRESENT [None]
  - INCORRECT STORAGE OF DRUG [None]
  - JOINT RANGE OF MOTION DECREASED [None]
  - UPPER LIMB FRACTURE [None]
  - NEPHROLITHIASIS [None]
